FAERS Safety Report 8554873-1 (Version None)
Quarter: 2012Q3

REPORT INFORMATION
  Report Type: 
  Country: None (occurrence: None)
  Receive Date: 20120731
  Receipt Date: 20120725
  Transmission Date: 20120928
  Serious: Yes (Death, Hospitalization)
  Sender: FDA-Public Use
  Company Number: US-PFIZER INC-2012179724

PATIENT
  Age: 76 Year
  Sex: Female
  Weight: 61.8 kg

DRUGS (2)
  1. REVATIO [Suspect]
     Dosage: UNK
  2. REMODULIN [Suspect]
     Indication: PULMONARY ARTERIAL HYPERTENSION
     Dosage: 31.68 UG/KG (0.22 UG/KG, 1 IN 1 MIN)
     Route: 041
     Dates: start: 20111206

REACTIONS (3)
  - CHRONIC OBSTRUCTIVE PULMONARY DISEASE [None]
  - FLUID RETENTION [None]
  - DYSPNOEA [None]
